FAERS Safety Report 4395680-3 (Version None)
Quarter: 2004Q3

REPORT INFORMATION
  Report Type: 
  Country: None (occurrence: None)
  Receive Date: 20040707
  Receipt Date: 20040625
  Transmission Date: 20050211
  Serious: Yes (Hospitalization)
  Sender: FDA-Public Use
  Company Number: 2004042797

PATIENT
  Age: 35 Year
  Sex: Male

DRUGS (1)
  1. ZELDOX [Suspect]
     Indication: SCHIZOPHRENIA
     Dosage: 120 MG, ORAL
     Route: 048
     Dates: start: 20031112, end: 20031224

REACTIONS (3)
  - DERMATITIS ALLERGIC [None]
  - PRURITUS [None]
  - RASH MACULO-PAPULAR [None]
